FAERS Safety Report 20138296 (Version 1)
Quarter: 2021Q4

REPORT INFORMATION
  Report Type: Spontaneous
  Country: ES (occurrence: ES)
  Receive Date: 20211202
  Receipt Date: 20211202
  Transmission Date: 20220303
  Serious: Yes (Other)
  Sender: FDA-Public Use
  Company Number: None

PATIENT
  Age: 71 Year
  Sex: Male

DRUGS (4)
  1. OXALIPLATIN [Suspect]
     Active Substance: OXALIPLATIN
     Indication: Cutaneous T-cell lymphoma
     Dosage: 225 MG, OXALIPLATIN (7351A)
     Route: 042
     Dates: start: 20210727, end: 20210727
  2. GEMCITABINE [Suspect]
     Active Substance: GEMCITABINE
     Indication: Cutaneous T-cell lymphoma
     Dosage: 1730 MG, GEMCITABIN (7314A)
     Route: 042
     Dates: start: 20210727, end: 20210727
  3. PEGASPARGASE [Suspect]
     Active Substance: PEGASPARGASE
     Indication: Cutaneous T-cell lymphoma
     Dosage: 1250 IU, PEGASPARGASE (8162A)
     Route: 042
     Dates: start: 20210727, end: 20210727
  4. DEXAMETHASONE [Concomitant]
     Active Substance: DEXAMETHASONE
     Indication: Cutaneous T-cell lymphoma
     Dosage: 12 MG, DEXAMETASONE (722A)
     Route: 042
     Dates: start: 20210727, end: 20210727

REACTIONS (1)
  - Hepatitis cholestatic [Recovered/Resolved]

NARRATIVE: CASE EVENT DATE: 20210809
